FAERS Safety Report 13305675 (Version 1)
Quarter: 2017Q1

REPORT INFORMATION
  Report Type: Spontaneous
  Country: None (occurrence: US)
  Receive Date: 20170308
  Receipt Date: 20170308
  Transmission Date: 20170428
  Serious: No
  Sender: FDA-Public Use
  Company Number: US-TORRENT-00001349

PATIENT
  Age: 49 Year
  Sex: Female
  Weight: 90 kg

DRUGS (1)
  1. PRAMIPEXOLE DIHYDROCHLORIDE TORRENT [Suspect]
     Active Substance: PRAMIPEXOLE DIHYDROCHLORIDE

REACTIONS (1)
  - Drug ineffective [Unknown]
